FAERS Safety Report 23598394 (Version 1)
Quarter: 2024Q1

REPORT INFORMATION
  Report Type: Report from Study
  Country: US (occurrence: US)
  Receive Date: 20240305
  Receipt Date: 20240305
  Transmission Date: 20240410
  Serious: Yes (Hospitalization)
  Sender: FDA-Public Use
  Company Number: US-ESPERIONTHERAPEUTICS-2024USA00335

PATIENT
  Age: 66 Year

DRUGS (1)
  1. BEMPEDOIC ACID\EZETIMIBE [Suspect]
     Active Substance: BEMPEDOIC ACID\EZETIMIBE
     Indication: Product used for unknown indication
     Dosage: 180 MG/10 MG, QD
     Route: 048
     Dates: start: 202305, end: 202401

REACTIONS (3)
  - Unevaluable event [Unknown]
  - Asthma [Unknown]
  - Myalgia [Unknown]

NARRATIVE: CASE EVENT DATE: 20240201
